FAERS Safety Report 15811369 (Version 2)
Quarter: 2019Q1

REPORT INFORMATION
  Report Type: Spontaneous
  Country: US (occurrence: US)
  Receive Date: 20190111
  Receipt Date: 20190117
  Transmission Date: 20190417
  Serious: Yes (Hospitalization, Other)
  Sender: FDA-Public Use
  Company Number: US-STRIDES ARCOLAB LIMITED-2019SP000399

PATIENT
  Age: 12 Year
  Sex: Female

DRUGS (1)
  1. IBUPROFEN. [Suspect]
     Active Substance: IBUPROFEN
     Indication: HEADACHE
     Dosage: 600 MG, SIX TIMES A DAY
     Route: 065

REACTIONS (14)
  - Tubulointerstitial nephritis and uveitis syndrome [Recovered/Resolved]
  - Papilloedema [Recovered/Resolved]
  - Overdose [Recovered/Resolved]
  - Retinal detachment [Recovered/Resolved]
  - Uveitis [Recovered/Resolved]
  - Subretinal fluid [Recovered/Resolved]
  - Choroiditis [Recovered/Resolved]
  - Kidney fibrosis [Recovered/Resolved]
  - Renal tubular atrophy [Recovered/Resolved]
  - Lyme disease [Recovered/Resolved]
  - Eye inflammation [Recovered/Resolved]
  - Chronic kidney disease [Not Recovered/Not Resolved]
  - Self-medication [Recovered/Resolved]
  - Vision blurred [Recovered/Resolved]
